FAERS Safety Report 4907068-4 (Version None)
Quarter: 2006Q1

REPORT INFORMATION
  Report Type: 
  Country: None (occurrence: None)
  Receive Date: 20060206
  Receipt Date: 20060126
  Transmission Date: 20060701
  Serious: Yes (Hospitalization, Other)
  Sender: FDA-Public Use
  Company Number: ACO_0210_2006

PATIENT
  Age: 70 Year
  Sex: Female
  Weight: 89.8122 kg

DRUGS (19)
  1. ZANAFLEX [Suspect]
     Indication: BACK PAIN
     Dosage: 4 MG Q8HR PO
     Route: 048
     Dates: start: 20051225, end: 20060105
  2. ZANAFLEX [Suspect]
     Indication: MUSCLE SPASMS
     Dosage: 4 MG Q8HR PO
     Route: 048
     Dates: start: 20051225, end: 20060105
  3. ZANAFLEX [Suspect]
     Indication: BACK PAIN
     Dosage: 6 MG Q8HR PO
     Route: 048
     Dates: start: 20060105, end: 20060115
  4. ZANAFLEX [Suspect]
     Indication: MUSCLE SPASMS
     Dosage: 6 MG Q8HR PO
     Route: 048
     Dates: start: 20060105, end: 20060115
  5. ZANAFLEX [Suspect]
     Indication: BACK PAIN
     Dosage: 7 MG ONCE PO
     Route: 048
     Dates: start: 20060115, end: 20060115
  6. ZANAFLEX [Suspect]
     Indication: MUSCLE SPASMS
     Dosage: 7 MG ONCE PO
     Route: 048
     Dates: start: 20060115, end: 20060115
  7. ZANAFLEX [Suspect]
     Indication: BACK PAIN
     Dosage: 6 MG Q8HR PO
     Route: 048
     Dates: start: 20060115, end: 20060122
  8. ZANAFLEX [Suspect]
     Indication: MUSCLE SPASMS
     Dosage: 6 MG Q8HR PO
     Route: 048
     Dates: start: 20060115, end: 20060122
  9. ZANAFLEX [Suspect]
     Indication: BACK PAIN
     Dosage: 5 MG Q8HR PO
     Route: 048
     Dates: start: 20060122, end: 20060123
  10. ZANAFLEX [Suspect]
     Indication: MUSCLE SPASMS
     Dosage: 5 MG Q8HR PO
     Route: 048
     Dates: start: 20060122, end: 20060123
  11. ZANAFLEX [Suspect]
     Indication: BACK PAIN
     Dosage: 4 MG Q8HR PO
     Route: 048
     Dates: start: 20060124
  12. ZANAFLEX [Suspect]
     Indication: MUSCLE SPASMS
     Dosage: 4 MG Q8HR PO
     Route: 048
     Dates: start: 20060124
  13. NEXIUM [Concomitant]
  14. CYMBALTA [Concomitant]
  15. ZYPREXA [Concomitant]
  16. NEURONTIN [Concomitant]
  17. MUCINEX [Concomitant]
  18. TOPROL-XL [Concomitant]
  19. PLAVIX [Concomitant]

REACTIONS (8)
  - CONFUSIONAL STATE [None]
  - COORDINATION ABNORMAL [None]
  - DYSARTHRIA [None]
  - DYSKINESIA [None]
  - HYPOTENSION [None]
  - SEDATION [None]
  - SOMNOLENCE [None]
  - TREMOR [None]
